FAERS Safety Report 18516664 (Version 1)
Quarter: 2020Q4

REPORT INFORMATION
  Report Type: Spontaneous
  Country: US (occurrence: US)
  Receive Date: 20201118
  Receipt Date: 20201118
  Transmission Date: 20210114
  Serious: Yes (Hospitalization)
  Sender: FDA-Public Use
  Company Number: None

PATIENT
  Age: 29 Year
  Sex: Female
  Weight: 77.4 kg

DRUGS (1)
  1. CHLORAPREP [Suspect]
     Active Substance: CHLORHEXIDINE GLUCONATE\ISOPROPYL ALCOHOL
     Indication: PREOPERATIVE CARE
     Dosage: ?          OTHER FREQUENCY:ONE TIME USE;?
     Route: 061
     Dates: start: 20200910, end: 20200910

REACTIONS (3)
  - Pruritus [None]
  - Urticaria [None]
  - Skin weeping [None]

NARRATIVE: CASE EVENT DATE: 20200910
